FAERS Safety Report 4541831-7 (Version None)
Quarter: 2004Q4

REPORT INFORMATION
  Report Type: 
  Country: None (occurrence: None)
  Receive Date: 20041227
  Receipt Date: 20041211
  Transmission Date: 20050328
  Serious: Yes (Death)
  Sender: FDA-Public Use
  Company Number: 211102

PATIENT
  Age: 70 Year
  Sex: Male

DRUGS (5)
  1. MABTHERA             (RITUXIMAB) [Suspect]
     Indication: LYMPHOMA
     Dates: start: 20040401, end: 20040901
  2. CYCLOPHOSPHAMIDE [Suspect]
     Indication: LYMPHOMA
     Dates: start: 20040401, end: 20040901
  3. VINCRISTINE [Suspect]
     Indication: LYMPHOMA
     Dates: start: 20040401, end: 20040901
  4. DOXORUBICIN(DOXORUBICIN HYDROCHLORIDE, DOXORUBICIN) [Suspect]
     Indication: LYMPHOMA
     Dates: start: 20040401, end: 20040901
  5. PREDNISONE(PREDNISONE) [Suspect]
     Indication: LYMPHOMA
     Dates: start: 20040401, end: 20040901

REACTIONS (5)
  - COMA [None]
  - DIARRHOEA [None]
  - MENINGITIS PNEUMOCOCCAL [None]
  - PYREXIA [None]
  - SPINAL FRACTURE [None]
